FAERS Safety Report 4485161-0 (Version None)
Quarter: 2004Q4

REPORT INFORMATION
  Report Type: 
  Country: None (occurrence: None)
  Receive Date: 20041026
  Receipt Date: 20040121
  Transmission Date: 20050328
  Serious: No
  Sender: FDA-Public Use
  Company Number: US-BRISTOL-MYERS SQUIBB COMPANY-12483392

PATIENT
  Age: 75 Year
  Sex: Female
  Weight: 68 kg

DRUGS (5)
  1. GLUCOPHAGE XR [Suspect]
     Indication: DIABETES MELLITUS
     Route: 048
     Dates: start: 20040106, end: 20040123
  2. PREDNISONE [Concomitant]
  3. LOTREL [Concomitant]
  4. METOPROLOL [Concomitant]
  5. MULTI-VITAMINS [Concomitant]

REACTIONS (1)
  - DIARRHOEA [None]
